FAERS Safety Report 13840206 (Version 1)
Quarter: 2017Q3

REPORT INFORMATION
  Report Type: Spontaneous
  Country: US (occurrence: US)
  Receive Date: 20170807
  Receipt Date: 20170807
  Transmission Date: 20171127
  Serious: Yes (Other)
  Sender: FDA-Public Use
  Company Number: None

PATIENT
  Age: 40 Year
  Sex: Male
  Weight: 71 kg

DRUGS (13)
  1. MIDOSTAURIN [Suspect]
     Active Substance: MIDOSTAURIN
     Indication: MYELODYSPLASTIC SYNDROME
     Route: 048
     Dates: start: 20170609, end: 20170622
  2. ZOSYN [Concomitant]
     Active Substance: PIPERACILLIN SODIUM\TAZOBACTAM SODIUM
  3. BACTRIM [Concomitant]
     Active Substance: SULFAMETHOXAZOLE\TRIMETHOPRIM
  4. AMBISOME [Concomitant]
     Active Substance: AMPHOTERICIN B
  5. FILGRASTIM [Concomitant]
     Active Substance: FILGRASTIM
  6. SIMETHICONE (DIMETHICONE) [Concomitant]
     Active Substance: DIMETHICONE
  7. MICAFUNGIN [Concomitant]
     Active Substance: MICAFUNGIN
  8. TRAMADOL. [Concomitant]
     Active Substance: TRAMADOL
  9. POSACONAZOLE [Concomitant]
     Active Substance: POSACONAZOLE
  10. LEVOFLOXACIN. [Concomitant]
     Active Substance: LEVOFLOXACIN
  11. MEROPENEM. [Concomitant]
     Active Substance: MEROPENEM
  12. ACYCLOVIR. [Concomitant]
     Active Substance: ACYCLOVIR
  13. OXYCODONE [Concomitant]
     Active Substance: OXYCODONE

REACTIONS (2)
  - Drug hypersensitivity [None]
  - Rash maculo-papular [None]

NARRATIVE: CASE EVENT DATE: 20170614
